FAERS Safety Report 20350360 (Version 1)
Quarter: 2022Q1

REPORT INFORMATION
  Report Type: Report from Study
  Country: TH (occurrence: None)
  Receive Date: 20220119
  Receipt Date: 20220119
  Transmission Date: 20220423
  Serious: Yes (Death)
  Sender: FDA-Public Use
  Company Number: 2022A025991

PATIENT
  Age: 83 Year
  Sex: Female

DRUGS (2)
  1. TAGRISSO [Suspect]
     Active Substance: OSIMERTINIB
     Indication: Non-small cell lung cancer metastatic
     Route: 048
     Dates: start: 20200507, end: 20211111
  2. UNSPECIFIED INGREDIENT [Concomitant]
     Active Substance: UNSPECIFIED INGREDIENT

REACTIONS (10)
  - Intestinal obstruction [Fatal]
  - Metastases to liver [Fatal]
  - Asthenia [Fatal]
  - Fatigue [Fatal]
  - Loss of consciousness [Fatal]
  - Oxygen saturation decreased [Fatal]
  - Pulmonary oedema [Fatal]
  - Pneumonia [Fatal]
  - Platelet count decreased [Fatal]
  - Drug ineffective [Fatal]

NARRATIVE: CASE EVENT DATE: 20211101
